FAERS Safety Report 4609672-X (Version None)
Quarter: 2005Q1

REPORT INFORMATION
  Report Type: 
  Country: None (occurrence: None)
  Receive Date: 20050314
  Receipt Date: 20050131
  Transmission Date: 20050727
  Serious: Yes (Death)
  Sender: FDA-Public Use
  Company Number: 2005AC00185

PATIENT
  Age: 43 Year
  Sex: Female

DRUGS (6)
  1. LIDOCAINE [Suspect]
     Indication: LOCAL ANAESTHESIA
     Dosage: 5 ML
  2. BOTOX [Suspect]
     Indication: BACK PAIN
     Dosage: 100 U
  3. BOTOX [Suspect]
     Indication: NECK PAIN
     Dosage: 100 U
  4. METHADONE HCL [Concomitant]
  5. ROBAXIN [Concomitant]
  6. OXYCODONE [Concomitant]

REACTIONS (12)
  - ANAPHYLACTIC REACTION [None]
  - ANXIETY [None]
  - CONVULSION [None]
  - DIZZINESS [None]
  - HEMIPARESIS [None]
  - LOSS OF CONSCIOUSNESS [None]
  - NECK PAIN [None]
  - PULMONARY ALVEOLAR HAEMORRHAGE [None]
  - PULMONARY OEDEMA [None]
  - SYNCOPE VASOVAGAL [None]
  - URINARY INCONTINENCE [None]
  - VENTRICULAR FIBRILLATION [None]
